FAERS Safety Report 18954114 (Version 2)
Quarter: 2021Q1

REPORT INFORMATION
  Report Type: Spontaneous
  Country: JP (occurrence: JP)
  Receive Date: 20210301
  Receipt Date: 20210315
  Transmission Date: 20210420
  Serious: Yes (Hospitalization)
  Sender: FDA-Public Use
  Company Number: JP-GLAXOSMITHKLINE-JP2021052417

PATIENT
  Age: 78 Year
  Sex: Female

DRUGS (2)
  1. MEPOLIZUMAB [Suspect]
     Active Substance: MEPOLIZUMAB
     Indication: ASTHMA
     Dosage: 100 MG, ONCE IN 4 WEEKS
     Route: 058
     Dates: start: 202003
  2. NUCALA [Suspect]
     Active Substance: MEPOLIZUMAB
     Indication: ASTHMA
     Dosage: 100 MG, ONCE IN 4 WEEKS
     Route: 058

REACTIONS (4)
  - Product dose omission issue [Unknown]
  - Eczema [Unknown]
  - Rib fracture [Unknown]
  - Off label use [Unknown]
